FAERS Safety Report 19519691 (Version 4)
Quarter: 2021Q3

REPORT INFORMATION
  Report Type: Report from Study
  Country: FR (occurrence: FR)
  Receive Date: 20210712
  Receipt Date: 20210806
  Transmission Date: 20211014
  Serious: Yes (Death, Hospitalization)
  Sender: FDA-Public Use
  Company Number: FR-ROCHE-2865232

PATIENT
  Age: 49 Year
  Sex: Female
  Weight: 48.5 kg

DRUGS (5)
  1. ATEZOLIZUMAB. [Suspect]
     Active Substance: ATEZOLIZUMAB
     Indication: NON-SMALL CELL LUNG CANCER
     Dosage: ON 08/JUN/2021, SHE RECEIVED THE MOST RECENT DOSE OF ATEZOLIZUMAB (1200 MG) PRIOR TO SERIOUS ADVERSE
     Route: 041
     Dates: start: 20210427
  2. BICARBONATE [Concomitant]
     Active Substance: SODIUM BICARBONATE
     Indication: ORAL FUNGAL INFECTION
     Dosage: 1 U
     Route: 048
     Dates: start: 20210427
  3. DOLIPRANE [Concomitant]
     Active Substance: ACETAMINOPHEN
     Indication: BACK PAIN
     Route: 048
     Dates: start: 20210609
  4. MOVICOL [Concomitant]
     Active Substance: POLYETHYLENE GLYCOL 3350\POTASSIUM CHLORIDE\SODIUM BICARBONATE\SODIUM CHLORIDE
     Indication: CONSTIPATION
     Route: 048
     Dates: start: 20210609
  5. CABOZANTINIB [Suspect]
     Active Substance: CABOZANTINIB
     Indication: NON-SMALL CELL LUNG CANCER
     Dosage: ON 28/JUN/2021, SHE RECEIVED THE MOST RECENT DOSE OF CABOZANTINIB (40 MG) PRIOR TO SERIOUS ADVERSE E
     Route: 048
     Dates: start: 20210427

REACTIONS (2)
  - Alanine aminotransferase increased [Fatal]
  - Blood bilirubin increased [Fatal]

NARRATIVE: CASE EVENT DATE: 20210705
